FAERS Safety Report 4467380-2 (Version None)
Quarter: 2004Q4

REPORT INFORMATION
  Report Type: 
  Country: None (occurrence: None)
  Receive Date: 20041006
  Receipt Date: 20040513
  Transmission Date: 20050328
  Serious: Yes (Other)
  Sender: FDA-Public Use
  Company Number: PHBS2004JP06439

PATIENT
  Age: 33 Year
  Sex: Male

DRUGS (5)
  1. NEORAL [Suspect]
     Indication: PSORIASIS
     Dosage: 225 MG/D
     Route: 048
     Dates: start: 20001130, end: 20040301
  2. NU LOTAN [Concomitant]
     Dosage: 3 DF, QW
     Route: 048
  3. ALLOPURINOL TAB [Concomitant]
     Dosage: 100 MG/D
     Route: 048
  4. COMELIAN [Concomitant]
     Dosage: 4 DF/D
     Route: 048
  5. DIPYRIDAMOLE [Concomitant]
     Indication: GLOMERULONEPHRITIS PROLIFERATIVE

REACTIONS (11)
  - ARTERIOPATHIC DISEASE [None]
  - BLOOD CREATININE INCREASED [None]
  - BLOOD UREA INCREASED [None]
  - BLOOD URIC ACID INCREASED [None]
  - CONCOMITANT DISEASE AGGRAVATED [None]
  - CONDITION AGGRAVATED [None]
  - GLOMERULONEPHRITIS PROLIFERATIVE [None]
  - NEPHROPATHY TOXIC [None]
  - RENAL DISORDER [None]
  - RENAL TUBULAR DISORDER [None]
  - TONSILLITIS [None]
